FAERS Safety Report 12668515 (Version 1)
Quarter: 2016Q3

REPORT INFORMATION
  Report Type: Spontaneous
  Country: FR (occurrence: FR)
  Receive Date: 20160819
  Receipt Date: 20160819
  Transmission Date: 20161109
  Serious: Yes (Death, Other)
  Sender: FDA-Public Use
  Company Number: FR-009507513-1608FRA006996

PATIENT
  Sex: Male

DRUGS (10)
  1. ESMERON [Suspect]
     Active Substance: ROCURONIUM BROMIDE
     Indication: INDUCTION AND MAINTENANCE OF ANAESTHESIA
     Dosage: 100 MG, ONCE
     Dates: start: 20160503
  2. XANAX [Concomitant]
     Active Substance: ALPRAZOLAM
     Dosage: 0.5 MG, UNK
  3. SUFENTANIL [Concomitant]
     Active Substance: SUFENTANIL
     Indication: INDUCTION AND MAINTENANCE OF ANAESTHESIA
     Dosage: 30 MICROGRAM, UNK
     Dates: start: 20160503
  4. DIPRIVAN [Concomitant]
     Active Substance: PROPOFOL
     Indication: INDUCTION AND MAINTENANCE OF ANAESTHESIA
     Dosage: 300 MG, UNK
     Dates: start: 20160503
  5. XYLOCAINE [Concomitant]
     Active Substance: LIDOCAINE HYDROCHLORIDE
     Indication: INDUCTION AND MAINTENANCE OF ANAESTHESIA
     Dosage: 30 MG, UNK
     Dates: start: 20160503
  6. AVLOCARDYL [Concomitant]
     Active Substance: PROPRANOLOL HYDROCHLORIDE
     Indication: PALPITATIONS
     Dosage: 40 MG, UNK
  7. HYPNOVEL [Concomitant]
     Active Substance: MIDAZOLAM\MIDAZOLAM HYDROCHLORIDE
     Indication: INDUCTION AND MAINTENANCE OF ANAESTHESIA
     Dosage: 1 MG, UNK
     Dates: start: 20160503
  8. NEURONTIN [Concomitant]
     Active Substance: GABAPENTIN
     Dosage: 600 MG, UNK
  9. COZAAR [Concomitant]
     Active Substance: LOSARTAN POTASSIUM
     Dosage: UNK
     Route: 048
     Dates: end: 20160502
  10. KETAMINE [Concomitant]
     Active Substance: KETAMINE
     Indication: INDUCTION AND MAINTENANCE OF ANAESTHESIA
     Dosage: 30 MG, UNK
     Dates: start: 20160503

REACTIONS (3)
  - Cardiac arrest [Fatal]
  - Anaphylactic shock [Fatal]
  - Bronchospasm [Fatal]

NARRATIVE: CASE EVENT DATE: 20160503
